FAERS Safety Report 10268498 (Version 1)
Quarter: 2014Q2

REPORT INFORMATION
  Report Type: Spontaneous
  Country: DK (occurrence: MY)
  Receive Date: 20140630
  Receipt Date: 20140630
  Transmission Date: 20141212
  Serious: Yes (Hospitalization)
  Sender: FDA-Public Use
  Company Number: MY-FRI-1000068561

PATIENT
  Age: 79 Year
  Sex: Male

DRUGS (2)
  1. LEXAPRO [Suspect]
     Route: 048
  2. LEXAPRO [Suspect]
     Route: 048

REACTIONS (3)
  - Syncope [Recovered/Resolved]
  - Foaming at mouth [Recovered/Resolved]
  - Drug interaction [Recovered/Resolved]
